FAERS Safety Report 12642151 (Version 1)
Quarter: 2016Q3

REPORT INFORMATION
  Report Type: Spontaneous
  Country: US (occurrence: US)
  Receive Date: 20160810
  Receipt Date: 20160810
  Transmission Date: 20161109
  Serious: No
  Sender: FDA-Public Use
  Company Number: US-BAYER-2016-154387

PATIENT
  Age: 66 Year
  Sex: Male
  Weight: 88.45 kg

DRUGS (2)
  1. MIRALAX [Suspect]
     Active Substance: POLYETHYLENE GLYCOL 3350
     Indication: COLONOSCOPY
     Dosage: ONE BOTTLE WITH WITH 1/2 GALLON GATORADE
     Route: 048
  2. DULCOLAX (DOCUSATE SODIUM) [Concomitant]
     Active Substance: DOCUSATE SODIUM
     Dosage: 3 DF, UNK

REACTIONS (3)
  - Off label use [None]
  - Wrong technique in product usage process [None]
  - Drug ineffective for unapproved indication [None]

NARRATIVE: CASE EVENT DATE: 20160808
